FAERS Safety Report 6696333-9 (Version None)
Quarter: 2010Q2

REPORT INFORMATION
  Report Type: 
  Country: None (occurrence: None)
  Receive Date: 20100422
  Receipt Date: 20100415
  Transmission Date: 20101027
  Serious: Yes (Other)
  Sender: FDA-Public Use
  Company Number: 2010SP021890

PATIENT
  Age: 9 Month
  Sex: Male

DRUGS (1)
  1. NASONEX [Suspect]
     Dosage: ;NAS
     Route: 045

REACTIONS (1)
  - GLAUCOMA [None]
